FAERS Safety Report 9852891 (Version 1)
Quarter: 2014Q1

REPORT INFORMATION
  Report Type: Spontaneous
  Country: US (occurrence: None)
  Receive Date: 20140128
  Receipt Date: 20140128
  Transmission Date: 20141002
  Serious: No
  Sender: FDA-Public Use
  Company Number: None

PATIENT
  Age: 68 Year
  Sex: Male
  Weight: 88 kg

DRUGS (13)
  1. CLEVIPREX [Suspect]
     Dates: start: 20140107, end: 20140109
  2. METOPROLOL [Concomitant]
  3. LOSARTAN [Concomitant]
  4. METOPROLOL [Concomitant]
  5. SERTRALINE [Concomitant]
  6. TIMOLOL [Concomitant]
  7. NOVOLOG [Concomitant]
  8. LANTUS [Concomitant]
  9. LEVETIRACETAM [Concomitant]
  10. LEVETIRACETAM [Concomitant]
  11. ONDANSETRON [Concomitant]
  12. TRIMETHOBENZAMIDE [Concomitant]
  13. PHYTONADIONE [Concomitant]

REACTIONS (3)
  - Cerebrovascular accident [None]
  - Atrial fibrillation [None]
  - Blood pressure increased [None]
